FAERS Safety Report 8300776-7 (Version None)
Quarter: 2012Q2

REPORT INFORMATION
  Report Type: 
  Country: None (occurrence: None)
  Receive Date: 20120420
  Receipt Date: 20120417
  Transmission Date: 20120825
  Serious: Yes (Life-Threatening, Hospitalization)
  Sender: FDA-Public Use
  Company Number: PHHO2011US05317

PATIENT
  Sex: Male

DRUGS (12)
  1. LASIX [Suspect]
  2. DIURETICS [Concomitant]
  3. ALDOSTERONE [Concomitant]
  4. BETA BLOCKING AGENTS [Concomitant]
  5. DIOVAN [Suspect]
  6. ANGIOTENSIN CONVERTING ENZYME BLOCKERS [Concomitant]
  7. METOPROLOL TARTRATE [Suspect]
  8. VERAPAMIL HYDROCHLORIDE [Suspect]
  9. SPIRONOLACTONE [Suspect]
  10. SAXAGLIPTIN [Concomitant]
  11. INSULIN GLARGINE [Concomitant]
  12. ANTICOAGULANTS [Concomitant]

REACTIONS (5)
  - HYPOXIA [None]
  - BLOOD CREATININE INCREASED [None]
  - BRADYCARDIA [None]
  - ASTHENIA [None]
  - HYPERKALAEMIA [None]
